FAERS Safety Report 9732453 (Version 7)
Quarter: 2015Q4

REPORT INFORMATION
  Report Type: Spontaneous
  Country: US (occurrence: US)
  Receive Date: 20131205
  Receipt Date: 20151013
  Transmission Date: 20160305
  Serious: No
  Sender: FDA-Public Use
  Company Number: US-PFIZER INC-2013346353

PATIENT
  Sex: Female

DRUGS (1)
  1. XELJANZ [Suspect]
     Active Substance: TOFACITINIB CITRATE
     Dosage: UNK
     Dates: start: 201311

REACTIONS (9)
  - Fatigue [Not Recovered/Not Resolved]
  - Feeling cold [Unknown]
  - Activities of daily living impaired [Unknown]
  - Drug intolerance [Unknown]
  - Chills [Unknown]
  - Pain [Not Recovered/Not Resolved]
  - Headache [Unknown]
  - Depressed mood [Unknown]
  - Asthenia [Unknown]

NARRATIVE: CASE EVENT DATE: 2013
